FAERS Safety Report 4915899-X (Version None)
Quarter: 2006Q1

REPORT INFORMATION
  Report Type: 
  Country: None (occurrence: None)
  Receive Date: 20060214
  Receipt Date: 20060206
  Transmission Date: 20060701
  Serious: Yes (Other)
  Sender: FDA-Public Use
  Company Number: 2005159587

PATIENT
  Age: 41 Year
  Sex: Male
  Weight: 122.4712 kg

DRUGS (7)
  1. ZYRTEC [Suspect]
     Indication: RHINORRHOEA
     Dosage: 2 IN 1 D
     Dates: start: 20050201
  2. ZYRTEC-D 12 HOUR [Suspect]
     Indication: ILL-DEFINED DISORDER
  3. NASONEX [Concomitant]
  4. PREVACID [Concomitant]
  5. AVANDIA [Concomitant]
  6. METFORMIN HCL [Concomitant]
  7. VITAMINS (VITAMINS) [Concomitant]

REACTIONS (6)
  - DRUG INEFFECTIVE [None]
  - DYSPHAGIA [None]
  - NASOPHARYNGITIS [None]
  - PARANOIA [None]
  - SINUS DISORDER [None]
  - THROAT TIGHTNESS [None]
